FAERS Safety Report 5854473-8 (Version None)
Quarter: 2008Q3

REPORT INFORMATION
  Report Type: 
  Country: None (occurrence: None)
  Receive Date: 20080822
  Receipt Date: 20080811
  Transmission Date: 20090109
  Serious: Yes (Hospitalization, Other)
  Sender: FDA-Public Use
  Company Number: DE-PFIZER INC-2008056887

PATIENT
  Sex: Female
  Weight: 77 kg

DRUGS (4)
  1. FARMORUBICIN [Suspect]
     Indication: BREAST CANCER
     Dosage: DAILY DOSE:90MG/M*2
     Route: 042
  2. CYCLOPHOSPHAMIDE [Suspect]
     Indication: BREAST CANCER
     Dosage: DAILY DOSE:600MG/M*2
     Route: 042
  3. METOCLOPRAMIDE HYDROCHLORIDE [Concomitant]
     Route: 048
     Dates: start: 20080616, end: 20080618
  4. FORTECORTIN [Concomitant]
     Route: 048
     Dates: start: 20080616

REACTIONS (4)
  - HEADACHE [None]
  - HYPERTENSION [None]
  - SINUS TACHYCARDIA [None]
  - TREMOR [None]
